FAERS Safety Report 10183752 (Version 3)
Quarter: 2014Q2

REPORT INFORMATION
  Report Type: Spontaneous
  Country: JP (occurrence: JP)
  Receive Date: 20140520
  Receipt Date: 20140624
  Transmission Date: 20141212
  Serious: Yes (Life-Threatening)
  Sender: FDA-Public Use
  Company Number: JP-ASTELLAS-2014JP002241

PATIENT
  Age: 8 Year
  Sex: Female
  Weight: 17 kg

DRUGS (83)
  1. PROGRAF [Suspect]
     Indication: PROPHYLAXIS AGAINST GRAFT VERSUS HOST DISEASE
     Route: 042
     Dates: start: 20130623
  2. PROGRAF [Suspect]
     Indication: NEUROBLASTOMA RECURRENT
     Route: 042
     Dates: end: 20130816
  3. ALKERAN                            /00006401/ [Suspect]
     Indication: PREMEDICATION
     Route: 042
     Dates: start: 20130619, end: 20130621
  4. ALKERAN                            /00006401/ [Suspect]
     Indication: NEUROBLASTOMA RECURRENT
  5. BUSULFEX [Suspect]
     Indication: NEUROBLASTOMA RECURRENT
     Route: 042
     Dates: start: 20130617, end: 20130621
  6. BUSULFEX [Suspect]
     Indication: PREMEDICATION
  7. METHOTREXATE [Concomitant]
     Indication: PROPHYLAXIS AGAINST GRAFT VERSUS HOST DISEASE
     Route: 042
     Dates: start: 20130625, end: 20130625
  8. METHOTREXATE [Concomitant]
     Indication: NEUROBLASTOMA RECURRENT
     Route: 042
     Dates: start: 20130627, end: 20130627
  9. METHOTREXATE [Concomitant]
     Route: 042
     Dates: start: 20130630, end: 20130630
  10. NEOPAREN [Concomitant]
     Indication: NEUROBLASTOMA RECURRENT
     Route: 042
     Dates: start: 20130701, end: 20130716
  11. SODIUM CHLORIDE [Concomitant]
     Indication: NEUROBLASTOMA RECURRENT
     Route: 042
     Dates: start: 20130623, end: 20130701
  12. SODIUM CHLORIDE [Concomitant]
     Route: 042
     Dates: start: 20130701, end: 20130716
  13. SODIUM CHLORIDE [Concomitant]
     Route: 042
     Dates: start: 20130716, end: 20130820
  14. MINERAMIC [Concomitant]
     Indication: NEUROBLASTOMA RECURRENT
     Route: 042
     Dates: start: 20130623, end: 20130701
  15. MINERAMIC [Concomitant]
     Route: 042
     Dates: start: 20130701, end: 20130716
  16. MINERAMIC [Concomitant]
     Route: 042
     Dates: start: 20130716, end: 20130820
  17. DALTEPARIN SODIUM [Concomitant]
     Indication: NEUROBLASTOMA RECURRENT
     Route: 042
     Dates: start: 20130625, end: 20130701
  18. DALTEPARIN SODIUM [Concomitant]
     Route: 042
     Dates: start: 20130701, end: 20130716
  19. DALTEPARIN SODIUM [Concomitant]
     Route: 042
     Dates: start: 20130716, end: 20130820
  20. SODIUM PHOSPHATE [Concomitant]
     Indication: NEUROBLASTOMA RECURRENT
     Route: 042
     Dates: start: 20130626, end: 20130702
  21. SODIUM PHOSPHATE [Concomitant]
     Route: 042
     Dates: start: 20130701, end: 20130716
  22. MAGNESIUM SULFATE [Concomitant]
     Indication: NEUROBLASTOMA RECURRENT
     Route: 042
     Dates: start: 20130626, end: 20130701
  23. MAGNESIUM SULFATE [Concomitant]
     Route: 042
     Dates: start: 20130701, end: 20130716
  24. MAGNESIUM SULFATE [Concomitant]
     Route: 042
     Dates: start: 20130806, end: 20130820
  25. KCL [Concomitant]
     Indication: NEUROBLASTOMA RECURRENT
     Route: 042
     Dates: start: 20130626, end: 20130701
  26. KCL [Concomitant]
     Route: 042
     Dates: start: 20130701, end: 20130716
  27. KCL [Concomitant]
     Route: 042
     Dates: start: 20130806, end: 20130820
  28. CEFEPIME HYDROCHLORIDE [Concomitant]
     Indication: INFECTION PROPHYLAXIS
     Dosage: 0.5 G, TWICE DAILY
     Route: 042
     Dates: start: 20130617, end: 20130627
  29. CEFEPIME HYDROCHLORIDE [Concomitant]
     Dosage: 0.5 G, TWICE DAILY
     Route: 042
     Dates: start: 20130628, end: 20130630
  30. CEFEPIME HYDROCHLORIDE [Concomitant]
     Dosage: 0.5 G, TWICE DAILY
     Route: 042
     Dates: start: 20130709, end: 20130712
  31. LASIX                              /00032601/ [Concomitant]
     Indication: URINE OUTPUT DECREASED
     Route: 042
     Dates: start: 20130622, end: 20130622
  32. LASIX                              /00032601/ [Concomitant]
     Indication: URINE OUTPUT DECREASED
     Dosage: 0.8 ML, ONCE DAILY
     Route: 042
     Dates: start: 20130627, end: 20130627
  33. LASIX                              /00032601/ [Concomitant]
     Dosage: 0.8 ML, ONCE DAILY
     Route: 042
     Dates: start: 20130630, end: 20130630
  34. LASIX                              /00032601/ [Concomitant]
     Dosage: 0.8 ML, ONCE DAILY
     Route: 042
     Dates: start: 20130704, end: 20130704
  35. ROPION [Concomitant]
     Indication: PAIN
     Route: 042
     Dates: start: 20130706, end: 20130706
  36. ANTHROBIN P [Concomitant]
     Indication: BONE MARROW FAILURE
     Dosage: UNK, UNKNOWN FREQ.
     Route: 042
     Dates: start: 20130702, end: 20130702
  37. ANTHROBIN P [Concomitant]
     Dosage: UNK UNK, ONCE DAILY
     Route: 042
     Dates: start: 20130707, end: 20130707
  38. FLUCONAZOLE [Concomitant]
     Indication: INFECTION PROPHYLAXIS
     Route: 048
     Dates: end: 20130622
  39. FLUCONAZOLE [Concomitant]
     Route: 048
     Dates: start: 20130712, end: 20130727
  40. FLUCONAZOLE [Concomitant]
     Route: 048
     Dates: start: 20130820
  41. BAKTAR [Concomitant]
     Indication: INFECTION PROPHYLAXIS
     Route: 048
     Dates: end: 20130623
  42. BAKTAR [Concomitant]
     Route: 048
     Dates: start: 20130712
  43. VICCLOX                            /00587301/ [Concomitant]
     Indication: INFECTION PROPHYLAXIS
     Route: 048
     Dates: end: 20130622
  44. VICCLOX                            /00587301/ [Concomitant]
     Route: 048
     Dates: start: 20130712, end: 20130726
  45. VICCLOX                            /00587301/ [Concomitant]
     Route: 048
     Dates: start: 20130820, end: 20130821
  46. NEOPAREN [Concomitant]
     Indication: NEUROBLASTOMA RECURRENT
     Route: 042
     Dates: start: 20130623, end: 20130701
  47. NEOPAREN [Concomitant]
     Route: 042
     Dates: start: 20130716, end: 20130820
  48. NORVASC [Concomitant]
     Indication: HYPERTENSION
     Route: 048
     Dates: start: 20130718
  49. DENOSINE                           /00784201/ [Concomitant]
     Indication: INFECTION PROPHYLAXIS
     Route: 042
     Dates: start: 20130619, end: 20130621
  50. DENOSINE                           /00784201/ [Concomitant]
     Indication: NEUROBLASTOMA RECURRENT
     Route: 042
     Dates: start: 20130718, end: 20130720
  51. MORPHINE HYDROCHLORIDE [Concomitant]
     Indication: NEUROBLASTOMA RECURRENT
     Route: 042
     Dates: start: 20130628, end: 20130716
  52. MORPHINE HYDROCHLORIDE [Concomitant]
     Indication: PAIN MANAGEMENT
     Route: 042
     Dates: start: 20130718, end: 20130814
  53. ISOTONIC SODIUM CHLORIDE SOLUTION [Concomitant]
     Indication: NEUROBLASTOMA RECURRENT
     Route: 042
     Dates: start: 20130628, end: 20130716
  54. ISOTONIC SODIUM CHLORIDE SOLUTION [Concomitant]
     Indication: PAIN MANAGEMENT
     Route: 042
     Dates: start: 20130718, end: 20130814
  55. GRANISETRON                        /01178102/ [Concomitant]
     Indication: BONE MARROW FAILURE
     Route: 042
     Dates: start: 20130617, end: 20130621
  56. GLUCOSE [Concomitant]
     Indication: NEUROBLASTOMA RECURRENT
     Route: 042
     Dates: start: 20130623, end: 20130816
  57. HEPARIN SODIUM [Concomitant]
     Indication: NEUROBLASTOMA RECURRENT
     Route: 042
     Dates: end: 20130623
  58. HEPARIN SODIUM [Concomitant]
     Route: 042
     Dates: start: 20130623, end: 20130624
  59. HEPARIN SODIUM [Concomitant]
     Route: 042
     Dates: start: 20130820
  60. ATARAX                             /00058402/ [Concomitant]
     Indication: BONE MARROW CONDITIONING REGIMEN
     Dosage: 0.6 ML, ONCE DAILY
     Route: 042
     Dates: start: 20130624, end: 20130624
  61. SAXIZON [Concomitant]
     Indication: BONE MARROW CONDITIONING REGIMEN
     Route: 042
     Dates: start: 20130624
  62. SAXIZON [Concomitant]
     Indication: ALLERGY PROPHYLAXIS
  63. ACICLOVIR [Concomitant]
     Indication: INFECTION PROPHYLAXIS
     Route: 042
     Dates: start: 20130622, end: 20130712
  64. ACICLOVIR [Concomitant]
     Route: 042
     Dates: start: 20130727, end: 20130809
  65. FUNGUARD [Concomitant]
     Indication: INFECTION PROPHYLAXIS
     Route: 042
     Dates: start: 20130622, end: 20130711
  66. FAMOTIDINE [Concomitant]
     Indication: PROPHYLAXIS
     Route: 042
     Dates: start: 20130625, end: 20130711
  67. FAMOTIDINE [Concomitant]
     Route: 042
     Dates: start: 20130723, end: 20130725
  68. FAMOTIDINE [Concomitant]
     Route: 042
     Dates: start: 20130727, end: 20130819
  69. GRAN [Concomitant]
     Indication: BONE MARROW FAILURE
     Dosage: 0.7 ?G, ONCE DAILY
     Route: 035
     Dates: start: 20130629, end: 20130712
  70. PENTCILLIN [Concomitant]
     Indication: INFECTION PROPHYLAXIS
     Route: 042
     Dates: start: 20130617, end: 20130619
  71. PENTCILLIN [Concomitant]
     Route: 042
     Dates: start: 20130627, end: 20130628
  72. ADONA                              /00056903/ [Concomitant]
     Indication: HAEMATOCHEZIA
     Route: 042
     Dates: start: 20130629, end: 20130702
  73. FINIBAX [Concomitant]
     Indication: INFECTION PROPHYLAXIS
     Dosage: 0.6 G, THRICE DAILY
     Route: 042
     Dates: start: 20130630, end: 20130708
  74. MINOCYCLINE                        /00232402/ [Concomitant]
     Indication: INFECTION PROPHYLAXIS
     Route: 042
     Dates: start: 20130630, end: 20130701
  75. VANCOMYCIN [Concomitant]
     Indication: INFECTION PROPHYLAXIS
     Route: 042
     Dates: start: 20130701, end: 20130706
  76. RIVOTRIL [Concomitant]
     Indication: CONVULSION PROPHYLAXIS
     Dosage: 0.5 MG, TWICE DAILY
     Route: 048
     Dates: start: 20130617, end: 20130618
  77. POLYMYXIN B SULFATE [Concomitant]
     Indication: INFECTION PROPHYLAXIS
     Route: 048
     Dates: end: 20130624
  78. BACCIDAL KYORIN [Concomitant]
     Indication: NEUROBLASTOMA RECURRENT
     Route: 048
     Dates: end: 20130624
  79. URSO                               /00465701/ [Concomitant]
     Indication: NEUROBLASTOMA RECURRENT
     Route: 048
     Dates: end: 20130820
  80. SOLDEM 1 [Concomitant]
     Indication: NEUROBLASTOMA RECURRENT
     Route: 042
     Dates: end: 20130623
  81. MEYLON [Concomitant]
     Indication: NEUROBLASTOMA RECURRENT
     Route: 042
     Dates: end: 20130623
  82. FUNGIZONE [Concomitant]
     Indication: INFECTION PROPHYLAXIS
     Dosage: UNK UNK, THRICE DAILY
     Route: 055
  83. ZYLORIC [Concomitant]
     Indication: HYPERURICAEMIA
     Route: 048
     Dates: start: 20130616, end: 20130622

REACTIONS (1)
  - Thrombotic microangiopathy [Recovering/Resolving]
